FAERS Safety Report 9710986 (Version 1)
Quarter: 2013Q4

REPORT INFORMATION
  Report Type: Spontaneous
  Country: US (occurrence: US)
  Receive Date: 20131126
  Receipt Date: 20131126
  Transmission Date: 20140711
  Serious: No
  Sender: FDA-Public Use
  Company Number: US-BRISTOL-MYERS SQUIBB COMPANY-19096494

PATIENT
  Sex: Male
  Weight: 99.77 kg

DRUGS (6)
  1. BYETTA PEN DISPOSABLE [Suspect]
     Route: 058
     Dates: start: 20130612
  2. METFORMIN HCL [Suspect]
  3. LANTUS [Suspect]
     Dosage: 1DF= 42 UNITS
  4. ATORVASTATIN [Concomitant]
  5. LOSARTAN [Concomitant]
  6. RAMIPRIL [Concomitant]

REACTIONS (1)
  - Blood glucose increased [Not Recovered/Not Resolved]
